FAERS Safety Report 13986402 (Version 1)
Quarter: 2017Q3

REPORT INFORMATION
  Report Type: Spontaneous
  Country: CN (occurrence: CN)
  Receive Date: 20170919
  Receipt Date: 20170919
  Transmission Date: 20171128
  Serious: Yes (Hospitalization, Other)
  Sender: FDA-Public Use
  Company Number: CN-ASTRAZENECA-2017SE95187

PATIENT
  Age: 27025 Day
  Sex: Male

DRUGS (2)
  1. TICAGRELOR. [Suspect]
     Active Substance: TICAGRELOR
     Indication: THROMBOCYTOPENIA
     Route: 048
     Dates: start: 20170501, end: 20170620
  2. ASPIRIN. [Suspect]
     Active Substance: ASPIRIN
     Indication: THROMBOCYTOPENIA
     Route: 048
     Dates: start: 20170501, end: 20170531

REACTIONS (2)
  - Upper gastrointestinal haemorrhage [Recovering/Resolving]
  - Faeces discoloured [Recovering/Resolving]

NARRATIVE: CASE EVENT DATE: 20170525
